FAERS Safety Report 25854299 (Version 1)
Quarter: 2025Q3

REPORT INFORMATION
  Report Type: Report from Study
  Country: US (occurrence: US)
  Receive Date: 20250927
  Receipt Date: 20250927
  Transmission Date: 20251020
  Serious: Yes (Other)
  Sender: ARDELYX
  Company Number: US-ARDELYX-2025ARDX007175

PATIENT
  Sex: Female

DRUGS (2)
  1. IBSRELA [Suspect]
     Active Substance: TENAPANOR HYDROCHLORIDE
     Indication: Impaired gastric emptying
     Route: 065
  2. IBSRELA [Suspect]
     Active Substance: TENAPANOR HYDROCHLORIDE
     Route: 065

REACTIONS (5)
  - Loss of consciousness [Unknown]
  - Fall [Unknown]
  - Dehydration [Unknown]
  - Frequent bowel movements [Unknown]
  - Product use in unapproved indication [Unknown]
